FAERS Safety Report 7223868-2 (Version None)
Quarter: 2011Q1

REPORT INFORMATION
  Report Type: 
  Country: None (occurrence: None)
  Receive Date: 20110112
  Receipt Date: 20110104
  Transmission Date: 20110831
  Serious: Yes (Other)
  Sender: FDA-Public Use
  Company Number: FR-AMGEN-FRASP2011001492

PATIENT

DRUGS (3)
  1. ENBREL [Suspect]
     Indication: ANKYLOSING SPONDYLITIS
     Dosage: 50 MG, WEEKLY
     Dates: start: 20101001
  2. STILNOX                            /00914901/ [Concomitant]
     Dosage: UNK
  3. APRANAX                            /00256201/ [Concomitant]
     Dosage: UNK

REACTIONS (10)
  - FATIGUE [None]
  - MIDDLE INSOMNIA [None]
  - HYPOTENSION [None]
  - DYSPNOEA [None]
  - MUSCLE SPASMS [None]
  - ARTHRALGIA [None]
  - IRRITABILITY [None]
  - MUSCULOSKELETAL STIFFNESS [None]
  - WEIGHT INCREASED [None]
  - INSOMNIA [None]
